FAERS Safety Report 7056460-3 (Version None)
Quarter: 2010Q4

REPORT INFORMATION
  Report Type: 
  Country: None (occurrence: None)
  Receive Date: 20101021
  Receipt Date: 20101012
  Transmission Date: 20110411
  Serious: Yes (Other)
  Sender: FDA-Public Use
  Company Number: HR-PFIZER INC-2010129312

PATIENT
  Sex: Male

DRUGS (1)
  1. SORTIS [Suspect]
     Dosage: 20 MG, UNK
     Route: 048
     Dates: start: 20090101, end: 20100101

REACTIONS (2)
  - HEPATIC LESION [None]
  - TRANSAMINASES INCREASED [None]
